FAERS Safety Report 9483314 (Version 2)
Quarter: 2013Q3

REPORT INFORMATION
  Report Type: Spontaneous
  Country: US (occurrence: US)
  Receive Date: 20130828
  Receipt Date: 20130828
  Transmission Date: 20140515
  Serious: Yes (Other)
  Sender: FDA-Public Use
  Company Number: US-AMGEN-KDL244723

PATIENT
  Age: 73 Year
  Sex: Male

DRUGS (9)
  1. ENBREL [Suspect]
     Indication: RHEUMATOID ARTHRITIS
     Dosage: 50 MG, QWK
     Route: 058
     Dates: start: 20040127
  2. METHOTREXATE [Concomitant]
     Dosage: 2.5 MG, QD
     Route: 048
     Dates: start: 2000
  3. VALDECOXIB [Concomitant]
     Dosage: 10 MG, QD
     Route: 048
  4. AMLODIPINE BESILATE [Concomitant]
  5. FOLIC ACID [Concomitant]
     Dosage: 1 MG, QD
  6. ASPIRIN [Concomitant]
  7. FLUOXETINE HYDROCHLORIDE [Concomitant]
  8. LISINOPRIL [Concomitant]
  9. METFORMIN HYDROCHLORIDE [Concomitant]

REACTIONS (2)
  - Pulmonary mass [Not Recovered/Not Resolved]
  - Biopsy lymph gland [Unknown]
